FAERS Safety Report 5366426-7 (Version None)
Quarter: 2007Q2

REPORT INFORMATION
  Report Type: 
  Country: None (occurrence: None)
  Receive Date: 20070622
  Receipt Date: 20070615
  Transmission Date: 20071010
  Serious: Yes (Other)
  Sender: FDA-Public Use
  Company Number: PHBS2007BR10299

PATIENT
  Age: 53 Year
  Sex: Female
  Weight: 47 kg

DRUGS (3)
  1. FORASEQ [Suspect]
     Indication: ASTHMA
     Dosage: UNK, UNK
  2. FLOTAC [Suspect]
  3. ACTONEL [Concomitant]
     Indication: OSTEOPOROSIS

REACTIONS (9)
  - ASTHMA [None]
  - CONSTIPATION [None]
  - ENEMA ADMINISTRATION [None]
  - FEELING ABNORMAL [None]
  - FLATULENCE [None]
  - IRRITABLE BOWEL SYNDROME [None]
  - RETCHING [None]
  - SURGERY [None]
  - SYNCOPE [None]
